FAERS Safety Report 6291776-X (Version None)
Quarter: 2009Q3

REPORT INFORMATION
  Report Type: 
  Country: None (occurrence: None)
  Receive Date: 20090730
  Receipt Date: 20090727
  Transmission Date: 20100115
  Serious: Yes (Hospitalization)
  Sender: FDA-Public Use
  Company Number: US-GILEAD-2009-0023065

PATIENT
  Age: 50 Year
  Sex: Male
  Weight: 88.076 kg

DRUGS (21)
  1. TRUVADA [Suspect]
     Indication: HIV INFECTION
     Route: 048
     Dates: start: 20090615, end: 20090708
  2. RITONAVIR [Suspect]
     Indication: HIV INFECTION
     Dates: start: 20090615, end: 20090708
  3. ATAZANAVIR SULFATE [Suspect]
     Indication: HIV INFECTION
     Dates: start: 20090615, end: 20090708
  4. ASPIRIN [Concomitant]
     Dates: start: 20050101
  5. DOXAZOSIN MESYLATE [Concomitant]
     Indication: BENIGN PROSTATIC HYPERPLASIA
     Dates: start: 20090106
  6. HYDROCORTISONE [Concomitant]
     Indication: RASH
     Dates: start: 20090301
  7. HYDROCORTISONE [Concomitant]
     Dates: start: 20090301
  8. ACCOLATE [Concomitant]
     Indication: RASH
     Dates: start: 20090301
  9. ACCOLATE [Concomitant]
     Dates: start: 20090301
  10. CENTRUM [Concomitant]
     Indication: SUPPLEMENTATION THERAPY
     Dates: start: 20090101
  11. CENTRUM [Concomitant]
     Dates: start: 20090301
  12. EMLA [Concomitant]
     Indication: RASH
     Dates: start: 20090301
  13. EMLA [Concomitant]
     Dates: start: 20090301
  14. PROVENTIL-HFA [Concomitant]
     Indication: ASTHMA
     Dates: start: 20090101
  15. PROVENTIL-HFA [Concomitant]
     Dates: start: 20090301
  16. ARTIFICIAL TEARS [Concomitant]
     Indication: DRY EYE
     Dates: start: 20051101
  17. ARTIFICIAL TEARS [Concomitant]
     Dates: start: 20090301
  18. RESTASIS [Concomitant]
     Indication: DRY EYE
     Dates: start: 20051101
  19. RESTASIS [Concomitant]
     Dates: start: 20090301
  20. NEXIUM [Concomitant]
     Indication: GASTROOESOPHAGEAL REFLUX DISEASE
     Dates: start: 20051101
  21. NEXIUM [Concomitant]
     Dates: start: 20090301

REACTIONS (1)
  - RASH [None]
